FAERS Safety Report 7000980-4 (Version None)
Quarter: 2010Q3

REPORT INFORMATION
  Report Type: 
  Country: None (occurrence: None)
  Receive Date: 20100920
  Receipt Date: 20090929
  Transmission Date: 20110219
  Serious: No
  Sender: FDA-Public Use
  Company Number: US-ASTRAZENECA-2009SE23538

PATIENT
  Age: 51 Year
  Sex: Female

DRUGS (4)
  1. SEROQUEL XR [Suspect]
     Route: 048
  2. SEROQUEL XR [Suspect]
     Dosage: 350 MG
     Route: 048
  3. KLONAZEPAM [Concomitant]
  4. LITHIUM [Concomitant]

REACTIONS (3)
  - HYPOMANIA [None]
  - PARANOIA [None]
  - SLEEP DISORDER [None]
